FAERS Safety Report 25529654 (Version 1)
Quarter: 2025Q3

REPORT INFORMATION
  Report Type: Spontaneous
  Country: US (occurrence: None)
  Receive Date: 20250708
  Receipt Date: 20250708
  Transmission Date: 20251020
  Serious: No
  Sender: FDA-CTU
  Company Number: None

PATIENT

DRUGS (2)
  1. ERLEADA [Suspect]
     Active Substance: APALUTAMIDE
  2. ADBRY [Suspect]
     Active Substance: TRALOKINUMAB-LDRM

REACTIONS (2)
  - Epistaxis [None]
  - Throat irritation [None]
